FAERS Safety Report 7375229-3 (Version None)
Quarter: 2011Q1

REPORT INFORMATION
  Report Type: 
  Country: None (occurrence: None)
  Receive Date: 20110325
  Receipt Date: 20110314
  Transmission Date: 20110831
  Serious: Yes (Disabling)
  Sender: FDA-Public Use
  Company Number: US-ELI_LILLY_AND_COMPANY-US200908000637

PATIENT
  Sex: Male
  Weight: 56.689 kg

DRUGS (2)
  1. FORTEO [Suspect]
     Dosage: 20 UG, DAILY (1/D)
     Route: 065
  2. FORTEO [Suspect]
     Indication: OSTEOPOROSIS
     Dosage: 20 UG, DAILY (1/D)
     Route: 065

REACTIONS (6)
  - SPINAL FRACTURE [None]
  - MYELOPATHY [None]
  - DISABILITY [None]
  - OSTEOPOROSIS [None]
  - KNEE DEFORMITY [None]
  - PAIN [None]
